FAERS Safety Report 5393313-0 (Version None)
Quarter: 2007Q3

REPORT INFORMATION
  Report Type: 
  Country: None (occurrence: None)
  Receive Date: 20070720
  Receipt Date: 20070720
  Transmission Date: 20080115
  Serious: Yes (Disabling)
  Sender: FDA-Public Use
  Company Number: None

PATIENT
  Sex: Male

DRUGS (1)
  1. APROTININ [Suspect]
     Indication: CARDIAC OPERATION
     Dosage: 500 K UNITS HR
     Dates: start: 20000925

REACTIONS (1)
  - CEREBROVASCULAR ACCIDENT [None]
